FAERS Safety Report 15065665 (Version 1)
Quarter: 2018Q2

REPORT INFORMATION
  Report Type: Spontaneous
  Country: US (occurrence: US)
  Receive Date: 20180626
  Receipt Date: 20180626
  Transmission Date: 20180711
  Serious: No
  Sender: FDA-Public Use
  Company Number: US-PFIZER INC-2018257256

PATIENT
  Age: 71 Year
  Sex: Female

DRUGS (2)
  1. CARBOPLATIN. [Suspect]
     Active Substance: CARBOPLATIN
     Dosage: UNK, CYCLIC(DAY 1 AND DAY 8 EVERY 21 DAYS X 3 CYCLES)
     Dates: start: 20151210
  2. GEMZAR [Suspect]
     Active Substance: GEMCITABINE HYDROCHLORIDE
     Dosage: UNK, CYCLIC(DAY 1 AND DAY 8 EVERY 21 DAYS X 3 CYCLES)
     Dates: start: 20151210

REACTIONS (2)
  - Pyrexia [Unknown]
  - Dyspnoea [Unknown]
